FAERS Safety Report 6632419-2 (Version None)
Quarter: 2010Q1

REPORT INFORMATION
  Report Type: 
  Country: None (occurrence: None)
  Receive Date: 20100312
  Receipt Date: 20091019
  Transmission Date: 20100710
  Serious: Yes (Other)
  Sender: FDA-Public Use
  Company Number: 2008BI010533

PATIENT
  Age: 52 Year
  Sex: Female
  Weight: 54 kg

DRUGS (3)
  1. AVONEX [Suspect]
     Indication: MULTIPLE SCLEROSIS
     Route: 030
     Dates: start: 19980101, end: 20050101
  2. AVONEX [Suspect]
     Route: 030
     Dates: start: 20050101
  3. AVONEX [Suspect]
     Route: 030

REACTIONS (2)
  - CONVULSION [None]
  - HYPERSENSITIVITY [None]
